FAERS Safety Report 5203854-4 (Version None)
Quarter: 2007Q1

REPORT INFORMATION
  Report Type: 
  Country: None (occurrence: None)
  Receive Date: 20070105
  Receipt Date: 20070105
  Transmission Date: 20070707
  Serious: Yes (Life-Threatening)
  Sender: FDA-Public Use
  Company Number: None

PATIENT
  Age: 59 Year
  Sex: Male
  Weight: 68 kg

DRUGS (4)
  1. FENTANYL [Suspect]
     Indication: SEDATION
     Dosage: 25 MCG IV X 2 DOSES
     Route: 042
     Dates: start: 20051116
  2. SOTALOL HYDROCHLORIDE [Concomitant]
  3. DIGOXIN [Concomitant]
  4. DOCUSATE SOD [Concomitant]

REACTIONS (2)
  - APNOEA [None]
  - PROCEDURAL COMPLICATION [None]
